FAERS Safety Report 6087544-4 (Version None)
Quarter: 2009Q1

REPORT INFORMATION
  Report Type: 
  Country: None (occurrence: None)
  Receive Date: 20090223
  Receipt Date: 20090213
  Transmission Date: 20090719
  Serious: Yes (Other)
  Sender: FDA-Public Use
  Company Number: PHHY2009FR05388

PATIENT
  Age: 52 Year
  Sex: Male

DRUGS (4)
  1. EXFORGE [Suspect]
     Indication: HYPERTENSION
     Dosage: 160 MG VALSARTAN/10 MG AMLODIPINE, QG
     Dates: start: 20090101
  2. FLUDEX [Concomitant]
     Indication: HYPERTENSION
     Dosage: UNK
  3. DIAMICRON [Concomitant]
     Indication: DIABETES MELLITUS
  4. AVANDAMET [Concomitant]
     Indication: DIABETES MELLITUS

REACTIONS (4)
  - ALANINE AMINOTRANSFERASE INCREASED [None]
  - ASPARTATE AMINOTRANSFERASE INCREASED [None]
  - GAMMA-GLUTAMYLTRANSFERASE INCREASED [None]
  - TRANSAMINASES INCREASED [None]
